FAERS Safety Report 7831287-0 (Version None)
Quarter: 2011Q4

REPORT INFORMATION
  Report Type: 
  Country: None (occurrence: None)
  Receive Date: 20111021
  Receipt Date: 20111018
  Transmission Date: 20120403
  Serious: Yes (Death)
  Sender: FDA-Public Use
  Company Number: CA-ROCHE-1005621

PATIENT
  Sex: Female
  Weight: 74.456 kg

DRUGS (4)
  1. SOLU-MEDROL [Concomitant]
  2. ZEPHIRAN [Concomitant]
  3. MAXERAN [Concomitant]
  4. AVASTIN [Suspect]
     Indication: OVARIAN CANCER
     Route: 042
     Dates: start: 20110324, end: 20110907

REACTIONS (1)
  - DEATH [None]
